FAERS Safety Report 6122791-4 (Version None)
Quarter: 2009Q1

REPORT INFORMATION
  Report Type: 
  Country: None (occurrence: None)
  Receive Date: 20090318
  Receipt Date: 20081002
  Transmission Date: 20090719
  Serious: No
  Sender: FDA-Public Use
  Company Number: US-AMGEN-KDL311128

PATIENT
  Sex: Female

DRUGS (6)
  1. NEULASTA [Suspect]
     Indication: CHEMOTHERAPY
     Dates: start: 20080926
  2. FOSAMAX [Concomitant]
  3. RITUXAN [Concomitant]
  4. ONCOVIN [Concomitant]
  5. DOXORUBICIN HCL [Concomitant]
  6. CYTOXAN [Concomitant]

REACTIONS (1)
  - NEUTROPHIL COUNT DECREASED [None]
